FAERS Safety Report 18569974 (Version 5)
Quarter: 2025Q3

REPORT INFORMATION
  Report Type: Report from Study
  Country: US (occurrence: US)
  Receive Date: 20201202
  Receipt Date: 20250806
  Transmission Date: 20251020
  Serious: Yes (Other)
  Sender: TAKEDA
  Company Number: US-TAKEDA-2019TUS064272

PATIENT
  Age: 53 Year
  Sex: Female
  Weight: 61.224 kg

DRUGS (20)
  1. VEDOLIZUMAB [Suspect]
     Active Substance: VEDOLIZUMAB
     Indication: Crohn^s disease
  2. VEDOLIZUMAB [Suspect]
     Active Substance: VEDOLIZUMAB
     Indication: Crohn^s disease
     Dosage: 108 MILLIGRAM, Q2WEEKS
     Dates: start: 20241101
  3. VEDOLIZUMAB [Suspect]
     Active Substance: VEDOLIZUMAB
     Dosage: 108 MILLIGRAM, Q2WEEKS
  4. RINVOQ [Suspect]
     Active Substance: UPADACITINIB
     Indication: Rheumatoid arthritis
  5. RINVOQ [Suspect]
     Active Substance: UPADACITINIB
     Indication: Crohn^s disease
  6. ZOLOFT [Suspect]
     Active Substance: SERTRALINE HYDROCHLORIDE
     Indication: Product used for unknown indication
  7. VITAMIN B [Concomitant]
     Active Substance: VITAMIN B
  8. MAGNESIUM [Concomitant]
     Active Substance: MAGNESIUM
  9. WELLBUTRIN [Concomitant]
     Active Substance: BUPROPION HYDROCHLORIDE
  10. XANAX [Concomitant]
     Active Substance: ALPRAZOLAM
  11. PREGABALIN [Concomitant]
     Active Substance: PREGABALIN
  12. ALIGN [Concomitant]
     Active Substance: BIFIDOBACTERIUM LONGUM SUBSP. INFANTIS
  13. XYZAL [Concomitant]
     Active Substance: LEVOCETIRIZINE DIHYDROCHLORIDE
  14. LEUCOVORIN CALCIUM [Concomitant]
     Active Substance: LEUCOVORIN CALCIUM
  15. DIAZEPAM [Concomitant]
     Active Substance: DIAZEPAM
  16. PREDNISONE [Concomitant]
     Active Substance: PREDNISONE
  17. HYDROXYCHLOROQUINE SULFATE [Concomitant]
     Active Substance: HYDROXYCHLOROQUINE SULFATE
  18. METHOCARBAMOL [Concomitant]
     Active Substance: METHOCARBAMOL
  19. METHOTREXATE [Concomitant]
     Active Substance: METHOTREXATE
  20. CROMOLYN SODIUM [Concomitant]
     Active Substance: CROMOLYN SODIUM

REACTIONS (21)
  - Crohn^s disease [Not Recovered/Not Resolved]
  - Hemiparesis [Unknown]
  - Loss of consciousness [Unknown]
  - Urinary retention [Unknown]
  - Rheumatoid arthritis [Unknown]
  - White coat hypertension [Recovered/Resolved]
  - Confusional state [Unknown]
  - Tremor [Unknown]
  - Injection site pain [Not Recovered/Not Resolved]
  - Neuralgia [Not Recovered/Not Resolved]
  - Gastrointestinal sounds abnormal [Unknown]
  - Drug clearance decreased [Unknown]
  - Dyspnoea [Unknown]
  - Heart rate increased [Unknown]
  - Dizziness [Unknown]
  - Blood pressure increased [Unknown]
  - Asthenia [Unknown]
  - Abdominal distension [Unknown]
  - Headache [Recovered/Resolved]
  - Nasopharyngitis [Not Recovered/Not Resolved]
  - Nausea [Recovered/Resolved]

NARRATIVE: CASE EVENT DATE: 20250111
